FAERS Safety Report 8793170 (Version 1)
Quarter: 2012Q4

REPORT INFORMATION
  Report Type: 
  Country: US (occurrence: US)
  Receive Date: 20120918
  Receipt Date: 20120918
  Transmission Date: 20130627
  Serious: No
  Sender: FDA-Public Use
  Company Number: US-ASTRAZENECA-2012SE05470

PATIENT
  Age: 40 Year
  Sex: Male

DRUGS (6)
  1. ZESTRIL [Suspect]
     Route: 048
  2. OMEPRAZOLE [Suspect]
     Route: 048
  3. CRESTOR [Suspect]
     Route: 048
  4. CLONIDINE [Suspect]
     Route: 065
  5. AMLODIPINE [Concomitant]
  6. IRON [Concomitant]
     Route: 048

REACTIONS (3)
  - Cough [Unknown]
  - Dry mouth [Unknown]
  - Drug hypersensitivity [Unknown]
